FAERS Safety Report 7124502-2 (Version None)
Quarter: 2010Q4

REPORT INFORMATION
  Report Type: 
  Country: None (occurrence: None)
  Receive Date: 20101128
  Receipt Date: 20101124
  Transmission Date: 20110411
  Serious: Yes (Hospitalization)
  Sender: FDA-Public Use
  Company Number: AU-AMGEN-KDL420466

PATIENT

DRUGS (2)
  1. VECTIBIX [Suspect]
     Indication: COLORECTAL CANCER
     Dosage: 600 MG, Q2WK
     Route: 042
     Dates: start: 20100603, end: 20100629
  2. VECTIBIX [Suspect]
     Dosage: 500 MG, UNK

REACTIONS (8)
  - BLOOD BILIRUBIN INCREASED [None]
  - DIARRHOEA [None]
  - JAUNDICE CHOLESTATIC [None]
  - PYREXIA [None]
  - RASH [None]
  - RASH ERYTHEMATOUS [None]
  - RASH PUSTULAR [None]
  - SKIN TOXICITY [None]
